FAERS Safety Report 20347418 (Version 1)
Quarter: 2022Q1

REPORT INFORMATION
  Report Type: Spontaneous
  Country: US (occurrence: None)
  Receive Date: 20220118
  Receipt Date: 20220118
  Transmission Date: 20220423
  Serious: No
  Sender: FDA-Public Use
  Company Number: None

PATIENT
  Age: 53 Year
  Sex: Male

DRUGS (1)
  1. CAPECITABINE [Suspect]
     Active Substance: CAPECITABINE
     Dosage: FREQUENCY : TWICE A DAY;?
     Route: 048
     Dates: start: 20220118

REACTIONS (6)
  - Hypoaesthesia [None]
  - Paraesthesia [None]
  - Erythema [None]
  - Peripheral swelling [None]
  - Skin exfoliation [None]
  - Blister [None]

NARRATIVE: CASE EVENT DATE: 20220118
